FAERS Safety Report 8163549-4 (Version None)
Quarter: 2012Q1

REPORT INFORMATION
  Report Type: 
  Country: None (occurrence: None)
  Receive Date: 20120103
  Receipt Date: 20111121
  Transmission Date: 20120608
  Serious: No
  Sender: FDA-Public Use
  Company Number: AE-2011-003842

PATIENT
  Age: 60 Year
  Sex: Male
  Weight: 59.8748 kg

DRUGS (5)
  1. INCIVEK [Suspect]
     Dosage: 2250 MG (750 MG,3 IN 1 D),ORAL
     Route: 048
     Dates: start: 20111111
  2. PEGINTERFERON (PEGINTERFERON ALFA-2A) [Concomitant]
  3. FLECAINIDE ACETATE [Concomitant]
  4. RIBAVIRIN [Concomitant]
  5. PRADAXA [Concomitant]

REACTIONS (1)
  - SKIN DISCOLOURATION [None]
